FAERS Safety Report 10012899 (Version 1)
Quarter: 2014Q1

REPORT INFORMATION
  Report Type: Spontaneous
  Country: US (occurrence: US)
  Receive Date: 20140314
  Receipt Date: 20140314
  Transmission Date: 20141002
  Serious: No
  Sender: FDA-Public Use
  Company Number: US-ASTRAZENECA-2013SE53477

PATIENT
  Age: 62 Year
  Sex: Female
  Weight: 62.6 kg

DRUGS (3)
  1. ZOMIG [Suspect]
     Indication: MIGRAINE
     Route: 048
     Dates: start: 2000
  2. GENERIC MEDICATIONS [Suspect]
  3. IMITREX [Concomitant]
     Indication: MIGRAINE

REACTIONS (4)
  - Drug eruption [Recovered/Resolved]
  - Swollen tongue [Recovered/Resolved]
  - Drug intolerance [Unknown]
  - Urticaria [Recovered/Resolved]
